FAERS Safety Report 24715273 (Version 1)
Quarter: 2024Q4

REPORT INFORMATION
  Report Type: Spontaneous
  Country: GB (occurrence: GB)
  Receive Date: 20241210
  Receipt Date: 20241210
  Transmission Date: 20250115
  Serious: Yes (Death, Life-Threatening, Hospitalization, Other)
  Sender: BOEHRINGER INGELHEIM
  Company Number: None

PATIENT
  Age: 64 Year
  Sex: Male
  Weight: 149 kg

DRUGS (1)
  1. EMPAGLIFLOZIN [Suspect]
     Active Substance: EMPAGLIFLOZIN
     Indication: Cardiac failure

REACTIONS (8)
  - Fournier^s gangrene [Fatal]
  - Cardiac failure [Unknown]
  - Penile gangrene [Unknown]
  - Ejection fraction decreased [Unknown]
  - Fall [Unknown]
  - Sepsis [Unknown]
  - Pyrexia [Unknown]
  - Skin lesion [Unknown]

NARRATIVE: CASE EVENT DATE: 20241122
